FAERS Safety Report 9099005 (Version 1)
Quarter: 2013Q1

REPORT INFORMATION
  Report Type: Spontaneous
  Country: JP (occurrence: JP)
  Receive Date: 20130213
  Receipt Date: 20130213
  Transmission Date: 20140127
  Serious: Yes (Other)
  Sender: FDA-Public Use
  Company Number: JP-ASTELLAS-2012JP012052

PATIENT
  Age: 85 Year
  Sex: Female
  Weight: 32.7 kg

DRUGS (5)
  1. VESICARE [Suspect]
     Indication: HYPERTONIC BLADDER
     Dosage: 5 MG, UID/QD
     Route: 048
     Dates: start: 201201, end: 20121219
  2. ANPLAG [Concomitant]
     Indication: PERIPHERAL ARTERIAL OCCLUSIVE DISEASE
     Dosage: 100 MG, BID
     Route: 048
     Dates: start: 20121130
  3. BENIDIPINE HYDROCHLORIDE [Concomitant]
     Indication: HYPERTENSION
     Dosage: 4 MG, BID
     Route: 048
     Dates: start: 2000
  4. BAYASPIRIN [Concomitant]
     Indication: TRANSIENT ISCHAEMIC ATTACK
     Dosage: 100 MG, UID/QD
     Route: 048
     Dates: start: 2000
  5. CALFINA [Concomitant]
     Indication: OSTEOPOROSIS
     Dosage: 1.0 MG, UID/QD
     Route: 048
     Dates: start: 2000

REACTIONS (3)
  - Urinary retention [Recovered/Resolved]
  - Dry mouth [Recovered/Resolved]
  - Gastritis haemorrhagic [Recovered/Resolved]
